FAERS Safety Report 15730834 (Version 2)
Quarter: 2019Q2

REPORT INFORMATION
  Report Type: Spontaneous
  Country: US (occurrence: US)
  Receive Date: 20181217
  Receipt Date: 20190507
  Transmission Date: 20190711
  Serious: Yes (Other)
  Sender: FDA-Public Use
  Company Number: US-SA-2018SA341504

PATIENT
  Age: 37 Year
  Sex: Female
  Weight: 79.37 kg

DRUGS (3)
  1. PARAPLATIN [Concomitant]
     Active Substance: CARBOPLATIN
     Dosage: UNK UNK, UNK
     Route: 065
  2. TAXOTERE [Suspect]
     Active Substance: DOCETAXEL
     Indication: BREAST CANCER FEMALE
     Dosage: 137 MG, Q3W
     Route: 042
     Dates: start: 20131104, end: 20131104
  3. TAXOTERE [Suspect]
     Active Substance: DOCETAXEL
     Dosage: 137 MG, Q3W
     Route: 042
     Dates: start: 20140219, end: 20140219

REACTIONS (3)
  - Alopecia [Unknown]
  - Psychological trauma [Unknown]
  - Emotional distress [Unknown]
